FAERS Safety Report 7757826-6 (Version None)
Quarter: 2011Q3

REPORT INFORMATION
  Report Type: 
  Country: None (occurrence: None)
  Receive Date: 20110918
  Receipt Date: 20110704
  Transmission Date: 20111222
  Serious: No
  Sender: FDA-Public Use
  Company Number: PHHY2011IE60071

PATIENT
  Age: 78 Year
  Sex: Male

DRUGS (1)
  1. RASILEZ [Suspect]
     Dosage: UNK UKN, UNK

REACTIONS (1)
  - SYNCOPE [None]
